FAERS Safety Report 25374098 (Version 2)
Quarter: 2025Q2

REPORT INFORMATION
  Report Type: Spontaneous
  Country: JP (occurrence: JP)
  Receive Date: 20250529
  Receipt Date: 20250617
  Transmission Date: 20250716
  Serious: Yes (Hospitalization, Other)
  Sender: ALEXION PHARMACEUTICALS
  Company Number: JP-ASTRAZENECA-250051277_030110_P_1

PATIENT
  Age: 67 Year

DRUGS (2)
  1. SYMBICORT [Suspect]
     Active Substance: BUDESONIDE\FORMOTEROL FUMARATE DIHYDRATE
  2. SYMBICORT [Suspect]
     Active Substance: BUDESONIDE\FORMOTEROL FUMARATE DIHYDRATE

REACTIONS (10)
  - Anaphylactic reaction [Unknown]
  - Colitis ulcerative [Unknown]
  - Microvascular coronary artery disease [Unknown]
  - Eosinophil count increased [Unknown]
  - Asthma [Unknown]
  - COVID-19 [Unknown]
  - Urticaria [Unknown]
  - Drug ineffective [Unknown]
  - Respiratory muscle weakness [Unknown]
  - Treatment noncompliance [Unknown]
